FAERS Safety Report 19576995 (Version 1)
Quarter: 2021Q3

REPORT INFORMATION
  Report Type: Spontaneous
  Country: US (occurrence: US)
  Receive Date: 20210719
  Receipt Date: 20210719
  Transmission Date: 20211014
  Serious: No
  Sender: FDA-Public Use
  Company Number: US-GLENMARK PHARMACEUTICALS-2020GMK050952

PATIENT

DRUGS (1)
  1. MUPIROCIN OINTMENT USP, 2% [Suspect]
     Active Substance: MUPIROCIN
     Indication: SINUSITIS
     Dosage: UNK, HS; ONCE A DAY AT NIGHT, BEFORE BEDTIME
     Route: 045
     Dates: start: 202012, end: 202012

REACTIONS (3)
  - Drug effective for unapproved indication [Unknown]
  - No adverse event [Unknown]
  - Incorrect route of product administration [Unknown]

NARRATIVE: CASE EVENT DATE: 202012
